FAERS Safety Report 18928823 (Version 2)
Quarter: 2021Q1

REPORT INFORMATION
  Report Type: Other
  Country: PY (occurrence: PY)
  Receive Date: 20210223
  Receipt Date: 20210224
  Transmission Date: 20210420
  Serious: No
  Sender: FDA-Public Use
  Company Number: PY-ROCHE-2776292

PATIENT
  Age: 23 Year
  Sex: Male

DRUGS (6)
  1. METHYLPREDNISOLONE. [Concomitant]
     Active Substance: METHYLPREDNISOLONE
     Dosage: SUBSEQUENT DOSE: 11/JUN/2020, 10/DEC/2020
     Route: 042
     Dates: start: 20200528
  2. ONDANSETRON [Concomitant]
     Active Substance: ONDANSETRON
     Dosage: SUBSEQUENT DOSE: 11/JUN/2020, 10/DEC/2020
     Route: 042
     Dates: start: 20200528
  3. OCRELIZUMAB. [Suspect]
     Active Substance: OCRELIZUMAB
     Dosage: 300 MG/250ML
     Route: 042
     Dates: start: 20200611
  4. OCRELIZUMAB. [Suspect]
     Active Substance: OCRELIZUMAB
     Indication: MULTIPLE SCLEROSIS
     Dosage: 300 MG/250ML
     Route: 042
     Dates: start: 20200528
  5. OCRELIZUMAB. [Suspect]
     Active Substance: OCRELIZUMAB
     Dosage: 600 MG/500ML
     Route: 042
     Dates: start: 20201210
  6. CHLORPHENIRAMINE. [Concomitant]
     Active Substance: CHLORPHENIRAMINE
     Dosage: SUBSEQUENT DOSE: 11/JUN/2020, 10/DEC/2020
     Route: 042
     Dates: start: 20200528, end: 20200528

REACTIONS (1)
  - Dengue fever [Recovered/Resolved]

NARRATIVE: CASE EVENT DATE: 20210213
